FAERS Safety Report 8655252 (Version 2)
Quarter: 2012Q4

REPORT INFORMATION
  Report Type: 
  Country: DE (occurrence: DE)
  Receive Date: 20120709
  Receipt Date: 20120904
  Transmission Date: 20130627
  Serious: Yes (Life-Threatening, Hospitalization, Other)
  Sender: FDA-Public Use
  Company Number: DE-ELI_LILLY_AND_COMPANY-DE201207001198

PATIENT
  Age: 57 Year
  Sex: Male
  Weight: 82 kg

DRUGS (5)
  1. EFIENT [Suspect]
     Indication: STENT PLACEMENT
     Dosage: UNK, unknown
  2. ASS [Concomitant]
     Dosage: 1000 mg, unknown
     Route: 065
  3. BISOPROLOL [Concomitant]
     Dosage: 5 mg, unknown
     Route: 065
  4. RAMIPRIL [Concomitant]
     Dosage: 5 mg, unknown
     Route: 065
  5. HCT [Concomitant]
     Indication: STENT PLACEMENT
     Dosage: 12.5 mg, unknown
     Route: 065

REACTIONS (2)
  - Thrombosis in device [Unknown]
  - Drug ineffective [Unknown]
